FAERS Safety Report 15919088 (Version 1)
Quarter: 2019Q1

REPORT INFORMATION
  Report Type: Spontaneous
  Country: US (occurrence: US)
  Receive Date: 20190205
  Receipt Date: 20190205
  Transmission Date: 20190417
  Serious: Yes (Other)
  Sender: FDA-Public Use
  Company Number: US-PFIZER INC-2019041449

PATIENT
  Sex: Female
  Weight: 53.52 kg

DRUGS (1)
  1. GABAPENTIN. [Suspect]
     Active Substance: GABAPENTIN
     Dosage: UNK
     Dates: start: 2004

REACTIONS (7)
  - Mouth swelling [Unknown]
  - Lip swelling [Unknown]
  - Rash [Unknown]
  - Drug hypersensitivity [Unknown]
  - Swelling face [Unknown]
  - Pharyngeal oedema [Unknown]
  - Swollen tongue [Unknown]
